FAERS Safety Report 7823967-8 (Version None)
Quarter: 2011Q4

REPORT INFORMATION
  Report Type: 
  Country: None (occurrence: None)
  Receive Date: 20111019
  Receipt Date: 20111010
  Transmission Date: 20120403
  Serious: Yes (Other)
  Sender: FDA-Public Use
  Company Number: US-JNJFOC-20111005854

PATIENT
  Sex: Male
  Weight: 81.65 kg

DRUGS (3)
  1. ZYTIGA [Suspect]
     Indication: PROSTATE CANCER
     Route: 048
     Dates: start: 20110701
  2. CARTIA XT [Concomitant]
     Indication: HYPERTENSION
     Route: 048
     Dates: start: 20090101
  3. PREDNISONE [Concomitant]
     Indication: PROSTATE CANCER
     Route: 048
     Dates: start: 20110701

REACTIONS (3)
  - OEDEMA PERIPHERAL [None]
  - BLOOD CHOLESTEROL INCREASED [None]
  - INTRAOCULAR PRESSURE INCREASED [None]
